FAERS Safety Report 6733161-X (Version None)
Quarter: 2010Q2

REPORT INFORMATION
  Report Type: 
  Country: None (occurrence: None)
  Receive Date: 20100520
  Receipt Date: 20100512
  Transmission Date: 20101027
  Serious: Yes (Hospitalization)
  Sender: FDA-Public Use
  Company Number: US-BIOGENIDEC-2010BI014179

PATIENT
  Sex: Female

DRUGS (2)
  1. AVONEX [Suspect]
     Indication: MULTIPLE SCLEROSIS
     Route: 030
     Dates: start: 20030830
  2. AVONEX [Suspect]
     Route: 030
     Dates: start: 19990729, end: 20030830

REACTIONS (2)
  - BLINDNESS UNILATERAL [None]
  - FATIGUE [None]
